FAERS Safety Report 24636666 (Version 2)
Quarter: 2025Q1

REPORT INFORMATION
  Report Type: Spontaneous
  Country: US (occurrence: US)
  Receive Date: 20241119
  Receipt Date: 20250113
  Transmission Date: 20250408
  Serious: No
  Sender: BANNER
  Company Number: US-PTA-005837

PATIENT
  Sex: Female

DRUGS (1)
  1. NAPROXEN [Suspect]
     Active Substance: NAPROXEN

REACTIONS (2)
  - Adverse event [Unknown]
  - Drug ineffective [Unknown]
